FAERS Safety Report 4606617-3 (Version None)
Quarter: 2005Q2

REPORT INFORMATION
  Report Type: 
  Country: None (occurrence: None)
  Receive Date: 20050223
  Receipt Date: 20040422
  Transmission Date: 20051028
  Serious: Yes (Life-Threatening, Hospitalization)
  Sender: FDA-Public Use
  Company Number: WAES 0404USA02047

PATIENT

DRUGS (4)
  1. ZOCOR [Suspect]
     Dosage: 40 MG/PO
     Route: 048
     Dates: end: 20040406
  2. COUMADIN [Concomitant]
  3. RYTHMOL [Concomitant]
  4. ATENOLOL [Concomitant]

REACTIONS (1)
  - THROMBOCYTOPENIA [None]
